FAERS Safety Report 11173827 (Version 1)
Quarter: 2015Q2

REPORT INFORMATION
  Report Type: Spontaneous
  Country: US (occurrence: None)
  Receive Date: 20150608
  Receipt Date: 20150608
  Transmission Date: 20150821
  Serious: Yes (Hospitalization)
  Sender: FDA-Public Use
  Company Number: None

PATIENT
  Age: 11 Year
  Sex: Male
  Weight: 50 kg

DRUGS (8)
  1. ANTI-ITCH CREAM (DIPHENHYDRAMINE AND ZINC ACETATE) [Concomitant]
  2. CEFEPIME [Suspect]
     Active Substance: CEFEPIME\CEFEPIME HYDROCHLORIDE
     Indication: URINARY TRACT INFECTION
     Route: 042
     Dates: start: 20150529, end: 20150601
  3. NALBUPHINE [Concomitant]
     Active Substance: NALBUPHINE
  4. KCL [Concomitant]
     Active Substance: POTASSIUM CHLORIDE
  5. PANTOPRAZOLE [Concomitant]
     Active Substance: PANTOPRAZOLE SODIUM
  6. MORPHINE [Concomitant]
     Active Substance: MORPHINE
  7. CEFEPIME [Suspect]
     Active Substance: CEFEPIME\CEFEPIME HYDROCHLORIDE
     Indication: CITROBACTER INFECTION
     Route: 042
     Dates: start: 20150529, end: 20150601
  8. DIAZEPAM. [Concomitant]
     Active Substance: DIAZEPAM

REACTIONS (2)
  - Emotional distress [None]
  - Gastrointestinal haemorrhage [None]

NARRATIVE: CASE EVENT DATE: 20150601
